FAERS Safety Report 25524661 (Version 1)
Quarter: 2025Q3

REPORT INFORMATION
  Report Type: Spontaneous
  Country: AU (occurrence: AU)
  Receive Date: 20250707
  Receipt Date: 20250707
  Transmission Date: 20251021
  Serious: Yes (Other)
  Sender: SAMSUNG BIOEPIS
  Company Number: AU-SAMSUNG BIOEPIS-SB-2025-22914

PATIENT
  Age: 29 Year
  Sex: Male

DRUGS (1)
  1. ADALIMUMAB [Suspect]
     Active Substance: ADALIMUMAB
     Indication: Sarcoidosis

REACTIONS (5)
  - Lymphadenopathy [Unknown]
  - Pericardial effusion [Unknown]
  - Psychotic disorder [Unknown]
  - Drug ineffective for unapproved indication [Unknown]
  - Off label use [Unknown]
